FAERS Safety Report 20430736 (Version 1)
Quarter: 2022Q1

REPORT INFORMATION
  Report Type: Report from Study
  Country: FR (occurrence: FR)
  Receive Date: 20220204
  Receipt Date: 20220204
  Transmission Date: 20220423
  Serious: Yes (Hospitalization)
  Sender: FDA-Public Use
  Company Number: FR-SERVIER-S21003613

PATIENT

DRUGS (7)
  1. PEGASPARGASE [Suspect]
     Active Substance: PEGASPARGASE
     Indication: Acute lymphocytic leukaemia
     Dosage: 1050 IU, QD ON D12, D26, ONGOING
     Route: 042
     Dates: start: 20210215
  2. TN UNSPECIFIED [Concomitant]
     Indication: Acute lymphocytic leukaemia
     Dosage: 25 MG, D1 TO D29, ONGOING
     Route: 048
     Dates: start: 20210203
  3. TN UNSPECIFIED [Concomitant]
     Indication: Acute lymphocytic leukaemia
     Dosage: 0.6 MG, D8, D15, D22, D29, ONGOING
     Route: 042
     Dates: start: 20210210
  4. TN UNSPECIFIED [Concomitant]
     Indication: Acute lymphocytic leukaemia
     Dosage: 12.5 MG, D8, D15, D22, D29, ONGOING
     Route: 042
     Dates: start: 20210210
  5. TN UNSPECIFIED [Concomitant]
     Indication: Acute lymphocytic leukaemia
     Dosage: 20 MG, D9, D11, D18, D24, ONGOING
     Route: 037
     Dates: start: 20210211
  6. TN UNSPECIFIED [Concomitant]
     Indication: Acute lymphocytic leukaemia
     Dosage: 10 MG, D9, D11, D18, D24, ONGOING
     Route: 037
     Dates: start: 20210211
  7. TN UNSPECIFIED [Concomitant]
     Indication: Acute lymphocytic leukaemia
     Dosage: 8 MG, D9, D11, D18, D24, ONGOING
     Route: 037
     Dates: start: 20210211

REACTIONS (1)
  - Enterobacter sepsis [Recovered/Resolved]

NARRATIVE: CASE EVENT DATE: 20210227
